FAERS Safety Report 14539427 (Version 1)
Quarter: 2018Q1

REPORT INFORMATION
  Report Type: Spontaneous
  Country: US (occurrence: US)
  Receive Date: 20180216
  Receipt Date: 20180216
  Transmission Date: 20180509
  Serious: Yes (Hospitalization, Other)
  Sender: FDA-Public Use
  Company Number: US-COLLEGIUM PHARMACEUTICAL, INC.-US-2018DEP000351

PATIENT

DRUGS (3)
  1. NUCYNTA ER [Suspect]
     Active Substance: TAPENTADOL HYDROCHLORIDE
     Indication: BACK PAIN
     Dosage: 150 MG, BID
     Route: 048
     Dates: start: 2010
  2. NUCYNTA ER [Suspect]
     Active Substance: TAPENTADOL HYDROCHLORIDE
     Indication: NEURALGIA
  3. NUCYNTA ER [Suspect]
     Active Substance: TAPENTADOL HYDROCHLORIDE
     Indication: ARTHRALGIA

REACTIONS (5)
  - Meningitis [Recovered/Resolved]
  - Breast cancer [Recovered/Resolved]
  - Cardiac disorder [Recovered/Resolved]
  - Drug dose omission [Unknown]
  - Product distribution issue [Unknown]

NARRATIVE: CASE EVENT DATE: 201508
